FAERS Safety Report 8257535-3 (Version None)
Quarter: 2012Q2

REPORT INFORMATION
  Report Type: 
  Country: None (occurrence: None)
  Receive Date: 20120403
  Receipt Date: 20120319
  Transmission Date: 20120825
  Serious: Yes (Hospitalization)
  Sender: FDA-Public Use
  Company Number: JP-WATSON-2012-05336

PATIENT
  Age: 67 Year
  Sex: Female

DRUGS (2)
  1. CLOMIPRAMINE HCL [Suspect]
     Indication: DEPRESSION
     Dosage: 75 MG, UNKNOWN
     Route: 065
  2. PAROXETINE HYDROCHLORIDE [Suspect]
     Indication: DEPRESSION
     Dosage: 20 MG, DAILY
     Route: 065

REACTIONS (4)
  - DRUG ERUPTION [None]
  - NIGHTMARE [None]
  - DRUG INEFFECTIVE [None]
  - TRANCE [None]
